FAERS Safety Report 6994638-5 (Version None)
Quarter: 2010Q3

REPORT INFORMATION
  Report Type: 
  Country: None (occurrence: None)
  Receive Date: 20100915
  Receipt Date: 20100915
  Transmission Date: 20110219
  Serious: Yes (Other)
  Sender: FDA-Public Use
  Company Number: None

PATIENT
  Age: 65 Year
  Sex: Female
  Weight: 56.6996 kg

DRUGS (1)
  1. RECLAST [Suspect]
     Indication: BONE DENSITY DECREASED
     Dosage: ONE INFUSION ONCE IV DRIP
     Route: 041
     Dates: start: 20100310, end: 20100310

REACTIONS (6)
  - ARTHRALGIA [None]
  - EXOSTOSIS [None]
  - HOT FLUSH [None]
  - MASS [None]
  - MUSCULOSKELETAL PAIN [None]
  - PALPITATIONS [None]
